FAERS Safety Report 5929366-8 (Version None)
Quarter: 2008Q4

REPORT INFORMATION
  Report Type: 
  Country: None (occurrence: None)
  Receive Date: 20081024
  Receipt Date: 20081022
  Transmission Date: 20090506
  Serious: Yes (Death, Life-Threatening)
  Sender: FDA-Public Use
  Company Number: US-ASTRAZENECA-2008UW23005

PATIENT
  Age: 45 Year
  Sex: Female

DRUGS (3)
  1. SEROQUEL [Suspect]
     Indication: SCHIZOPHRENIA
     Route: 048
  2. DDAVP [Concomitant]
     Dosage: 1 PILL TWICE A DAY
  3. THYROID REPLACEMENT [Concomitant]

REACTIONS (6)
  - BLOOD ELECTROLYTES ABNORMAL [None]
  - CONFUSIONAL STATE [None]
  - DEATH [None]
  - SEDATION [None]
  - SUNBURN [None]
  - VOMITING [None]
